FAERS Safety Report 23332754 (Version 3)
Quarter: 2025Q2

REPORT INFORMATION
  Report Type: Spontaneous
  Country: US (occurrence: US)
  Receive Date: 20231222
  Receipt Date: 20250421
  Transmission Date: 20250717
  Serious: Yes (Hospitalization, Other)
  Sender: PFIZER
  Company Number: US-PFIZER INC-PV202300201520

PATIENT
  Age: 77 Year
  Sex: Female
  Weight: 49.887 kg

DRUGS (2)
  1. PREMARIN [Suspect]
     Active Substance: ESTROGENS, CONJUGATED
     Indication: Oophorectomy
     Dosage: 125 MG, 1X/DAY
  2. PREMARIN [Suspect]
     Active Substance: ESTROGENS, CONJUGATED
     Indication: Hot flush

REACTIONS (4)
  - Visual impairment [Not Recovered/Not Resolved]
  - Macular degeneration [Unknown]
  - Lacrimation increased [Unknown]
  - Dry eye [Unknown]
